FAERS Safety Report 22302432 (Version 2)
Quarter: 2023Q2

REPORT INFORMATION
  Report Type: Spontaneous
  Country: US (occurrence: US)
  Receive Date: 20230510
  Receipt Date: 20230517
  Transmission Date: 20230721
  Serious: Yes (Other)
  Sender: FDA-Public Use
  Company Number: US-JNJFOC-20230506051

PATIENT
  Age: 69 Year
  Sex: Female

DRUGS (2)
  1. TYLENOL 8 HR ARTHRITIS PAIN [Suspect]
     Active Substance: ACETAMINOPHEN
     Indication: Arthritis
     Dosage: THE TABLETS WERE TAKEN DAILY ONLY AT BEDTIME (1 PER EVENING) FOR TWO TO THREE DAYS
     Route: 065
     Dates: start: 202304, end: 202304
  2. ASPIRIN [Concomitant]
     Active Substance: ASPIRIN
     Indication: Product used for unknown indication
     Route: 065

REACTIONS (5)
  - Blindness [Recovering/Resolving]
  - Incorrect dose administered [Recovering/Resolving]
  - Inappropriate schedule of product administration [Recovering/Resolving]
  - Headache [Not Recovered/Not Resolved]
  - Asthenopia [Not Recovered/Not Resolved]

NARRATIVE: CASE EVENT DATE: 20230101
